FAERS Safety Report 7323103-0 (Version None)
Quarter: 2011Q1

REPORT INFORMATION
  Report Type: 
  Country: None (occurrence: None)
  Receive Date: 20110301
  Receipt Date: 20110222
  Transmission Date: 20110831
  Serious: Yes (Other)
  Sender: FDA-Public Use
  Company Number: IT-JNJFOC-20101206720

PATIENT
  Sex: Female

DRUGS (4)
  1. TAVOR [Concomitant]
     Indication: ILL-DEFINED DISORDER
     Route: 048
  2. CONCOR [Suspect]
     Indication: HYPERTENSION
     Route: 048
  3. COTAREG [Suspect]
     Indication: HYPERTENSION
     Route: 048
  4. RISPERDAL [Suspect]
     Indication: PSYCHOTIC DISORDER
     Route: 048

REACTIONS (4)
  - LIMB INJURY [None]
  - SYNCOPE [None]
  - FALL [None]
  - HYPOTENSION [None]
